FAERS Safety Report 9125344 (Version 1)
Quarter: 2013Q1

REPORT INFORMATION
  Report Type: Spontaneous
  Country: JP (occurrence: JP)
  Receive Date: 20130121
  Receipt Date: 20130121
  Transmission Date: 20140127
  Serious: Yes (Hospitalization)
  Sender: FDA-Public Use
  Company Number: JP-ELI_LILLY_AND_COMPANY-JP201212007368

PATIENT
  Age: 46 Year
  Sex: Female
  Weight: 60.1 kg

DRUGS (3)
  1. BYETTA [Suspect]
     Indication: TYPE 2 DIABETES MELLITUS
     Dosage: 5 UG, BID
     Route: 058
     Dates: start: 20121128
  2. BYETTA [Suspect]
     Dosage: 5 UG, BID
  3. METFORMIN [Concomitant]
     Dosage: 250 MG, BID
     Route: 048
     Dates: start: 20121127

REACTIONS (1)
  - Colitis ischaemic [Recovering/Resolving]
